FAERS Safety Report 20826747 (Version 6)
Quarter: 2022Q3

REPORT INFORMATION
  Report Type: Spontaneous
  Country: GB (occurrence: GB)
  Receive Date: 20220513
  Receipt Date: 20220902
  Transmission Date: 20221027
  Serious: Yes (Hospitalization, Other)
  Sender: FDA-Public Use
  Company Number: GB-VERTEX PHARMACEUTICALS-2022-006958

PATIENT
  Sex: Female

DRUGS (41)
  1. ELEXACAFTOR\IVACAFTOR\TEZACAFTOR [Suspect]
     Active Substance: ELEXACAFTOR\IVACAFTOR\TEZACAFTOR
     Indication: Cystic fibrosis
     Dosage: 75MG/50MG/100MG
     Route: 048
     Dates: end: 20220429
  2. KALYDECO [Suspect]
     Active Substance: IVACAFTOR
     Indication: Cystic fibrosis
     Dosage: UNK
     Route: 048
  3. KALYDECO [Suspect]
     Active Substance: IVACAFTOR
     Dosage: UNK
     Route: 048
  4. LINEZOLID [Suspect]
     Active Substance: LINEZOLID
     Indication: Product used for unknown indication
     Dosage: 300 MILLIGRAM, TID
     Route: 065
     Dates: end: 20220429
  5. OMEPRAZOLE [Suspect]
     Active Substance: OMEPRAZOLE
     Indication: Duodenal ulcer
     Dosage: 20 MILLIGRAM, BID
     Route: 055
  6. OMEPRAZOLE [Suspect]
     Active Substance: OMEPRAZOLE
     Dosage: 20 MILLIGRAM
     Route: 055
  7. AMIKACIN [Concomitant]
     Active Substance: AMIKACIN
     Dosage: 500 MILLIGRAM, BID
  8. AMIKACIN [Concomitant]
     Active Substance: AMIKACIN
     Dosage: 500 MILLIGRAM
  9. BEDAQUILINE [Concomitant]
     Active Substance: BEDAQUILINE
     Dosage: 200 MILLIGRAM, THREE TIMES PER WEEK, PUFFS VIA SPACER.
     Route: 055
  10. BEDAQUILINE [Concomitant]
     Active Substance: BEDAQUILINE
  11. BECLOMETHASONE DIPROPIONATE [Concomitant]
     Active Substance: BECLOMETHASONE DIPROPIONATE
     Dosage: PUFFS. VIA SPACER.
     Route: 055
  12. BECLOMETHASONE DIPROPIONATE [Concomitant]
     Active Substance: BECLOMETHASONE DIPROPIONATE
     Dosage: PUFFS. VIA SPACER.
     Route: 055
  13. BECLOMETHASONE DIPROPIONATE [Concomitant]
     Active Substance: BECLOMETHASONE DIPROPIONATE
     Dosage: PUFFS. VIA SPACER.
     Route: 055
  14. CHOLECALCIFEROL [Concomitant]
     Active Substance: CHOLECALCIFEROL
     Dosage: 2 DOSAGE FORM, QD
     Route: 048
  15. CHOLECALCIFEROL [Concomitant]
     Active Substance: CHOLECALCIFEROL
     Dosage: WITH MEALS AND SNACKS AS DIRECTED BY DIETICIAN.
     Route: 048
  16. CREON [Concomitant]
     Active Substance: PANCRELIPASE AMYLASE\PANCRELIPASE LIPASE\PANCRELIPASE PROTEASE
     Dosage: WITH MEALS AND SNACKS AS DIRECTED BY DIETICIAN.
     Route: 048
  17. CREON [Concomitant]
     Active Substance: PANCRELIPASE AMYLASE\PANCRELIPASE LIPASE\PANCRELIPASE PROTEASE
     Dosage: WITH MEALS AND SNACKS AS DIRECTED BY DIETICIAN.
     Route: 048
  18. CYPROHEPTADINE [Concomitant]
     Active Substance: CYPROHEPTADINE
     Dosage: 1/2 DAILY.
     Route: 048
  19. CYPROHEPTADINE [Concomitant]
     Active Substance: CYPROHEPTADINE
     Dosage: 4MG
     Route: 048
  20. CYPROHEPTADINE [Concomitant]
     Active Substance: CYPROHEPTADINE
     Dosage: 4MG
     Route: 048
  21. CHOLECALCIFEROL [Concomitant]
     Active Substance: CHOLECALCIFEROL
     Dosage: 800 INTERNATIONAL UNIT, QD
     Route: 048
  22. CHOLECALCIFEROL [Concomitant]
     Active Substance: CHOLECALCIFEROL
     Dosage: AS DIRECTED BY DIABETES TEAM:ON MONDAYS, WEDNESDAYS AND FRIDAYS
     Route: 048
  23. CHOLECALCIFEROL [Concomitant]
     Active Substance: CHOLECALCIFEROL
     Dosage: AS DIRECTED BY DIABETES TEAM:ON MONDAYS, WEDNESDAYS AND FRIDAYS
     Route: 048
  24. INSULIN ASPART [Concomitant]
     Active Substance: INSULIN ASPART
     Dosage: AS DIRECTED BY DIABETES TEAM.
     Route: 058
  25. INSULIN ASPART [Concomitant]
     Active Substance: INSULIN ASPART
     Dosage: ON MONDAYS, WEDNESDAYS AND FRIDAYS
     Route: 058
  26. MENADIOL [Concomitant]
     Active Substance: MENADIOL
     Dosage: 10 MG ON MONDAY, WEDNESDAY, FRIDAY
     Route: 048
  27. MENADIOL [Concomitant]
     Active Substance: MENADIOL
     Dosage: ON MONDAYS, WEDNESDAYS AND FRIDAYS.
     Route: 048
  28. MENADIOL [Concomitant]
     Active Substance: MENADIOL
     Dosage: ON MONDAYS, WEDNESDAYS AND FRIDAYS.
     Route: 048
  29. PYRIDOXINE [Concomitant]
     Active Substance: PYRIDOXINE
     Dosage: 100 MG, QD
  30. PYRIDOXINE [Concomitant]
     Active Substance: PYRIDOXINE
     Dosage: PUFFS. PRIOR TO BEDTIME VIA MDI AND SPACER
     Route: 055
  31. SODIUM CHLORIDE [Concomitant]
     Active Substance: SODIUM CHLORIDE
     Dosage: 1 DOSAGE FORM, BID (PUFFS. PRIOR TO BEDTIME VIA MDI AND SPACER)
  32. SODIUM CHLORIDE [Concomitant]
     Active Substance: SODIUM CHLORIDE
     Dosage: PUFFS. PRIOR TO BEDTIME VIA MDI AND SPACER.
     Route: 055
  33. SODIUM CHLORIDE [Concomitant]
     Active Substance: SODIUM CHLORIDE
     Dosage: PUFFS. PRIOR TO BEDTIME VIA MDI AND SPACER.
  34. ALBUTEROL [Concomitant]
     Active Substance: ALBUTEROL
     Dosage: 3 MG, 2 DOSAGE FORM, QD PUFFS PRIOR TO BEDTIME VIA MDI AND SPACER
     Route: 055
  35. ALBUTEROL [Concomitant]
     Active Substance: ALBUTEROL
     Dosage: 25 IU, PUFFS. PRIOR TO BEDTIME VIA MDI AND SPACER.
     Route: 055
  36. ALBUTEROL [Concomitant]
     Active Substance: ALBUTEROL
     Dosage: PUFFS. PRIOR TO BEDTIME VIA MDI AND SPACER.
     Route: 055
  37. VITAMIN D3 [Concomitant]
     Active Substance: CHOLECALCIFEROL
     Dosage: 500 INTERNATIONAL UNIT
  38. VITAMIN D3 [Concomitant]
     Active Substance: CHOLECALCIFEROL
     Dosage: 500 INTERNATIONAL UNIT
  39. ALBUTEROL [Concomitant]
     Active Substance: ALBUTEROL
  40. BECLOMETHASONE DIPROPIONATE [Concomitant]
     Active Substance: BECLOMETHASONE DIPROPIONATE
  41. INSULIN NOS [Concomitant]
     Active Substance: INSULIN NOS

REACTIONS (14)
  - Lupus-like syndrome [Unknown]
  - Butterfly rash [Unknown]
  - Rash [Unknown]
  - Vascular device infection [Unknown]
  - Drug hypersensitivity [Unknown]
  - Systemic lupus erythematosus [Unknown]
  - Fungal infection [Unknown]
  - Personality change [Not Recovered/Not Resolved]
  - Irritability [Not Recovered/Not Resolved]
  - Mood swings [Not Recovered/Not Resolved]
  - Disturbance in social behaviour [Not Recovered/Not Resolved]
  - Arthritis [Not Recovered/Not Resolved]
  - Emotional disorder [Not Recovered/Not Resolved]
  - Mood altered [Not Recovered/Not Resolved]
